FAERS Safety Report 8292511-6 (Version None)
Quarter: 2012Q2

REPORT INFORMATION
  Report Type: 
  Country: None (occurrence: None)
  Receive Date: 20120417
  Receipt Date: 20110413
  Transmission Date: 20120825
  Serious: No
  Sender: FDA-Public Use
  Company Number: US-ASTRAZENECA-2011SE21152

PATIENT

DRUGS (2)
  1. AMBIEN [Suspect]
     Indication: INSOMNIA
     Route: 065
  2. NEXIUM [Suspect]
     Indication: INSOMNIA
     Route: 048

REACTIONS (2)
  - DRUG INEFFECTIVE [None]
  - DRUG INEFFECTIVE FOR UNAPPROVED INDICATION [None]
